FAERS Safety Report 18988980 (Version 7)
Quarter: 2021Q2

REPORT INFORMATION
  Report Type: Report from Study
  Country: IL (occurrence: IL)
  Receive Date: 20210309
  Receipt Date: 20210608
  Transmission Date: 20210717
  Serious: Yes (Hospitalization)
  Sender: FDA-Public Use
  Company Number: IL-EISAI MEDICAL RESEARCH-EC-2021-088457

PATIENT
  Age: 73 Year
  Sex: Female
  Weight: 89 kg

DRUGS (25)
  1. LENVATINIB [Suspect]
     Active Substance: LENVATINIB
     Indication: ENDOMETRIAL CANCER
     Route: 048
     Dates: start: 20201210, end: 20210302
  2. PEMBROLIZUMAB. [Suspect]
     Active Substance: PEMBROLIZUMAB
     Route: 041
     Dates: start: 20210121, end: 20210121
  3. GLUCOMIN [Concomitant]
     Active Substance: METFORMIN HYDROCHLORIDE
     Dates: start: 200001, end: 20210412
  4. CARDILOC [Concomitant]
     Active Substance: BISOPROLOL FUMARATE
     Dates: start: 20210128, end: 20210128
  5. LYRICA [Concomitant]
     Active Substance: PREGABALIN
     Dates: start: 20210128, end: 202104
  6. CERNEVIT [Concomitant]
     Active Substance: VITAMINS
     Route: 042
     Dates: start: 20210125, end: 20210125
  7. OPTALGIN [Concomitant]
     Active Substance: METAMIZOLE
     Dates: start: 20210127, end: 20210127
  8. VASODIP [Concomitant]
     Active Substance: LERCANIDIPINE HYDROCHLORIDE
     Dates: start: 201001
  9. VALSARTAN. [Concomitant]
     Active Substance: VALSARTAN
     Dates: start: 201001
  10. PERCOCET [Concomitant]
     Active Substance: ACETAMINOPHEN\OXYCODONE HYDROCHLORIDE
     Dates: start: 20210127, end: 20210128
  11. LENVATINIB [Suspect]
     Active Substance: LENVATINIB
     Route: 048
     Dates: start: 20210322
  12. FENTANYL TRANSDERMAL SYSTEM [Concomitant]
     Active Substance: FENTANYL
     Dates: start: 20210127, end: 202104
  13. OPTALGIN [Concomitant]
     Active Substance: METAMIZOLE
     Dates: start: 20210128, end: 20210128
  14. FENTANYL. [Concomitant]
     Active Substance: FENTANYL
     Dates: start: 20210128, end: 20210128
  15. TARGIN [Concomitant]
     Active Substance: NALOXONE HYDROCHLORIDE\OXYCODONE HYDROCHLORIDE
     Dates: start: 20210128, end: 20210128
  16. MAGNESIUM [Concomitant]
     Active Substance: MAGNESIUM
     Dates: start: 202010
  17. OPTALGIN [Concomitant]
     Active Substance: METAMIZOLE
     Dates: start: 20201222, end: 20210126
  18. CARDILOC [Concomitant]
     Active Substance: BISOPROLOL FUMARATE
     Dates: start: 201001
  19. PEMBROLIZUMAB. [Suspect]
     Active Substance: PEMBROLIZUMAB
     Route: 041
     Dates: start: 20210211, end: 20210211
  20. ROSUVASTATIN CALCIUM. [Concomitant]
     Active Substance: ROSUVASTATIN CALCIUM
     Dates: start: 200501
  21. SODIUM CHLORIDE. [Concomitant]
     Active Substance: SODIUM CHLORIDE
     Route: 042
     Dates: start: 20210127, end: 20210127
  22. PEMBROLIZUMAB. [Suspect]
     Active Substance: PEMBROLIZUMAB
     Indication: ENDOMETRIAL CANCER
     Route: 041
     Dates: start: 20201210, end: 20201231
  23. PEMBROLIZUMAB. [Suspect]
     Active Substance: PEMBROLIZUMAB
     Route: 041
     Dates: start: 20210322
  24. OMEPRADEX [Concomitant]
     Active Substance: OMEPRAZOLE
     Dates: start: 201801
  25. VECTOR [Concomitant]
     Active Substance: VALSARTAN
     Dates: start: 20201213

REACTIONS (2)
  - Vomiting [Recovered/Resolved]
  - Device related infection [Recovered/Resolved]

NARRATIVE: CASE EVENT DATE: 20210207
